FAERS Safety Report 9402330 (Version 2)
Quarter: 2013Q3

REPORT INFORMATION
  Report Type: Spontaneous
  Country: US (occurrence: US)
  Receive Date: 20130716
  Receipt Date: 20130808
  Transmission Date: 20140515
  Serious: Yes (Other)
  Sender: FDA-Public Use
  Company Number: US-PFIZER INC-2013206546

PATIENT
  Age: 46 Year
  Sex: Female
  Weight: 56.69 kg

DRUGS (6)
  1. LYRICA [Suspect]
     Indication: MYOFASCIAL PAIN SYNDROME
     Dosage: 300 MG, 2X/DAY
     Dates: start: 2006
  2. LYRICA [Suspect]
     Dosage: 150 MG, 2X/DAY
     Route: 048
     Dates: start: 20130731
  3. ZOLOFT [Concomitant]
     Dosage: 200 MG, 1X/DAY
  4. ZOLOFT [Concomitant]
     Dosage: 100 MG, 1X/DAY
     Dates: start: 20130731
  5. RISPERIDONE [Concomitant]
     Dosage: UNK
  6. TRAZODONE [Concomitant]
     Dosage: UNK

REACTIONS (1)
  - Hand fracture [Unknown]
